FAERS Safety Report 24957569 (Version 4)
Quarter: 2025Q2

REPORT INFORMATION
  Report Type: Report from Study
  Country: JP (occurrence: JP)
  Receive Date: 20250212
  Receipt Date: 20250605
  Transmission Date: 20250717
  Serious: Yes (Death, Other)
  Sender: GALDERMA
  Company Number: JP-GALDERMA-JP2025001718

PATIENT

DRUGS (11)
  1. NEMOLIZUMAB [Suspect]
     Active Substance: NEMOLIZUMAB
     Indication: Dermatitis atopic
     Route: 058
     Dates: start: 20230509, end: 20230509
  2. NEMOLIZUMAB [Suspect]
     Active Substance: NEMOLIZUMAB
     Route: 058
     Dates: start: 20230606, end: 20230606
  3. NEMOLIZUMAB [Suspect]
     Active Substance: NEMOLIZUMAB
     Route: 058
     Dates: start: 20231212, end: 20231212
  4. NEMOLIZUMAB [Suspect]
     Active Substance: NEMOLIZUMAB
     Route: 058
     Dates: start: 20240109, end: 20240109
  5. NEMOLIZUMAB [Suspect]
     Active Substance: NEMOLIZUMAB
     Route: 058
     Dates: start: 20240206, end: 20240206
  6. DESLORATADINE [Concomitant]
     Active Substance: DESLORATADINE
     Indication: Dermatitis atopic
     Route: 048
  7. Rapifort [Concomitant]
     Indication: Dermatitis atopic
     Route: 061
     Dates: start: 20230509
  8. DELGOCITINIB [Concomitant]
     Active Substance: DELGOCITINIB
     Indication: Dermatitis atopic
     Route: 061
  9. BROTIZOLAM [Concomitant]
     Active Substance: BROTIZOLAM
     Indication: Insomnia
     Route: 048
  10. RAMELTEON [Concomitant]
     Active Substance: RAMELTEON
     Indication: Insomnia
     Route: 048
  11. NEUROTROPIN [Concomitant]
     Active Substance: NEUROTROPIN
     Indication: Periarthritis
     Route: 048

REACTIONS (3)
  - Lymphocyte morphology abnormal [Fatal]
  - Cutaneous T-cell lymphoma [Fatal]
  - Off label use [Recovered/Resolved]

NARRATIVE: CASE EVENT DATE: 20240221
